FAERS Safety Report 6596183-8 (Version None)
Quarter: 2010Q1

REPORT INFORMATION
  Report Type: 
  Country: None (occurrence: None)
  Receive Date: 20100219
  Receipt Date: 20100219
  Transmission Date: 20100710
  Serious: No
  Sender: FDA-Public Use
  Company Number: None

PATIENT
  Sex: Female

DRUGS (2)
  1. FERAHEME [Suspect]
     Indication: IRON DEFICIENCY ANAEMIA
     Dosage: 510MG Q WEEK X 2 DOSES IV
     Route: 042
     Dates: start: 20100224
  2. FERAHEME [Suspect]
     Indication: RENAL FAILURE CHRONIC
     Dosage: 510MG Q WEEK X 2 DOSES IV
     Route: 042
     Dates: start: 20100224

REACTIONS (1)
  - ANAPHYLACTIC REACTION [None]
